FAERS Safety Report 6599866-9 (Version None)
Quarter: 2010Q1

REPORT INFORMATION
  Report Type: 
  Country: None (occurrence: None)
  Receive Date: 20100224
  Receipt Date: 20100217
  Transmission Date: 20100710
  Serious: Yes (Death)
  Sender: FDA-Public Use
  Company Number: US-JNJFOC-20100109986

PATIENT
  Sex: Female
  Weight: 103.87 kg

DRUGS (2)
  1. REMICADE [Suspect]
     Indication: RHEUMATOID ARTHRITIS
     Route: 042
  2. REMICADE [Suspect]
     Route: 042

REACTIONS (3)
  - COLECTOMY [None]
  - POST PROCEDURAL COMPLICATION [None]
  - VENTRICULAR ARRHYTHMIA [None]
